FAERS Safety Report 24375666 (Version 1)
Quarter: 2024Q3

REPORT INFORMATION
  Report Type: Spontaneous
  Country: FR (occurrence: FR)
  Receive Date: 20240928
  Receipt Date: 20240928
  Transmission Date: 20241017
  Serious: Yes (Hospitalization, Other)
  Sender: BAXTER
  Company Number: None

PATIENT
  Age: 29 Year
  Sex: Female
  Weight: 79 kg

DRUGS (12)
  1. PROPOFOL [Suspect]
     Active Substance: PROPOFOL
     Indication: Anaesthesia
     Dosage: 160 MG 1 TOTAL (START DATE AND TIME: 19-APR-2024 16:05)
     Route: 042
     Dates: start: 20240419, end: 20240419
  2. SODIUM CHLORIDE [Suspect]
     Active Substance: SODIUM CHLORIDE
     Dosage: 500 ML, 1 TOTAL (START DATE AND TIME: 19-APR-2024 16:18)
     Route: 042
     Dates: start: 20240419, end: 20240419
  3. MIDAZOLAM [Suspect]
     Active Substance: MIDAZOLAM
     Indication: Anaesthesia
     Dosage: 2 MG 1 TOTAL (START DATE AND TIME: 19-APR-2024 15:55)
     Route: 042
     Dates: start: 20240419, end: 20240419
  4. EPINEPHRINE\LIDOCAINE [Suspect]
     Active Substance: EPINEPHRINE\LIDOCAINE
     Indication: Anaesthesia
     Dosage: (ROUTE: PARENTERAL) (START DATE AND TIME: 19-APR-2024 16:30)
     Route: 050
     Dates: start: 20240419, end: 20240419
  5. NEFOPAM HYDROCHLORIDE [Suspect]
     Active Substance: NEFOPAM HYDROCHLORIDE
     Indication: Anaesthesia
     Dosage: 20 MG 1 TOTAL (START DATE AND TIME: 19-APR-2024 16:21)
     Route: 042
     Dates: start: 20240419, end: 20240419
  6. DEXAMETHASONE [Suspect]
     Active Substance: DEXAMETHASONE
     Indication: Anaesthesia
     Dosage: 8 MG 1 TOTAL (START DATE AND TIME: 19-APR-2024 16:21)
     Route: 042
     Dates: start: 20240419, end: 20240419
  7. KETAMINE [Suspect]
     Active Substance: KETAMINE
     Indication: Anaesthesia
     Dosage: 15 MG 1 TOTAL (START DATE AND TIME: 19-APR-2024 16:05)
     Route: 042
     Dates: start: 20240419, end: 20240419
  8. CEFAZOLIN SODIUM [Suspect]
     Active Substance: CEFAZOLIN SODIUM
     Indication: Antibiotic prophylaxis
     Dosage: 2 G 1 TOTAL (START DATE AND TIME: 19-APR-2024 16:11)
     Route: 042
     Dates: start: 20240419, end: 20240419
  9. ROPIVACAINE HYDROCHLORIDE [Suspect]
     Active Substance: ROPIVACAINE HYDROCHLORIDE
     Indication: Anaesthesia
     Dosage: (ROUTE: PARENTERAL) (START TIME: 19-APR-2024 16:30)
     Route: 050
     Dates: start: 20240419, end: 20240419
  10. ATRACURIUM [Suspect]
     Active Substance: ATRACURIUM
     Indication: Anaesthesia
     Dosage: 25 MG 1 TOTAL (START DATE AND TIME: 19-APR-2024 16:06)
     Route: 042
     Dates: start: 20240419, end: 20240419
  11. ACETAMINOPHEN [Suspect]
     Active Substance: ACETAMINOPHEN
     Indication: Anaesthesia
     Dosage: 1 G 1 TOTAL (START DATE AND TIME: 19-APR-2024 16:21)
     Route: 042
     Dates: start: 20240419, end: 20240419
  12. SUFENTANIL [Concomitant]
     Active Substance: SUFENTANIL
     Indication: Anaesthesia
     Dosage: 15 UG 1 TOTAL (START DATE AND TIME: 19-APR-2024 16:05)
     Route: 042
     Dates: start: 20240419, end: 20240419

REACTIONS (1)
  - Anaphylactic reaction [Recovered/Resolved]

NARRATIVE: CASE EVENT DATE: 20240419
